FAERS Safety Report 10759651 (Version 1)
Quarter: 2015Q1

REPORT INFORMATION
  Report Type: Other
  Country: US (occurrence: US)
  Receive Date: 20150203
  Receipt Date: 20150203
  Transmission Date: 20150721
  Serious: Yes (Death)
  Sender: FDA-Public Use
  Company Number: US-FRI-1000074202

PATIENT
  Age: 26 Year
  Sex: Female

DRUGS (5)
  1. NEBIVOLOL [Suspect]
     Active Substance: NEBIVOLOL
  2. INSULIN [Suspect]
     Active Substance: INSULIN NOS
  3. CARVEDILOL. [Suspect]
     Active Substance: CARVEDILOL
  4. SALICYLATE [Suspect]
     Active Substance: SALICYLIC ACID
  5. GUANFACINE. [Suspect]
     Active Substance: GUANFACINE

REACTIONS (1)
  - Completed suicide [Fatal]
